FAERS Safety Report 6557818-9 (Version None)
Quarter: 2010Q1

REPORT INFORMATION
  Report Type: 
  Country: None (occurrence: None)
  Receive Date: 20100129
  Receipt Date: 20090205
  Transmission Date: 20100710
  Serious: No
  Sender: FDA-Public Use
  Company Number: US-BAUSCH-2009BL000555

PATIENT
  Age: 46 Year
  Sex: Female

DRUGS (2)
  1. NEOMYCIN AND POLYMXIN B SULFATES AND HYDROCORTISONE [Suspect]
     Route: 047
     Dates: start: 20090118, end: 20090118
  2. SENSITIVE EYES [Concomitant]
     Indication: CORRECTIVE LENS USER
     Route: 047

REACTIONS (5)
  - ASTHENOPIA [None]
  - EYE IRRITATION [None]
  - OCULAR HYPERAEMIA [None]
  - VISUAL IMPAIRMENT [None]
  - WRONG DRUG ADMINISTERED [None]
